FAERS Safety Report 5060640-6 (Version None)
Quarter: 2006Q3

REPORT INFORMATION
  Report Type: 
  Country: None (occurrence: None)
  Receive Date: 20060725
  Receipt Date: 20060717
  Transmission Date: 20061208
  Serious: Yes (Other)
  Sender: FDA-Public Use
  Company Number: US-JNJFOC-20060703656

PATIENT
  Sex: Female
  Weight: 92.99 kg

DRUGS (2)
  1. LEVAQUIN [Suspect]
     Indication: PNEUMONIA
     Route: 042
  2. LEVAQUIN [Suspect]
     Route: 048

REACTIONS (19)
  - ARTHRALGIA [None]
  - DIARRHOEA [None]
  - DISTURBANCE IN ATTENTION [None]
  - DYSPNOEA [None]
  - FATIGUE [None]
  - HEADACHE [None]
  - HYPERHIDROSIS [None]
  - INSOMNIA [None]
  - LYMPHOMA [None]
  - MEMORY IMPAIRMENT [None]
  - MIGRAINE [None]
  - MUSCULAR WEAKNESS [None]
  - PAIN [None]
  - PARAESTHESIA [None]
  - SUNBURN [None]
  - THIRST [None]
  - URTICARIA [None]
  - VISUAL DISTURBANCE [None]
  - WEIGHT INCREASED [None]
